FAERS Safety Report 22135503 (Version 1)
Quarter: 2023Q1

REPORT INFORMATION
  Report Type: Spontaneous
  Country: US (occurrence: US)
  Receive Date: 20230324
  Receipt Date: 20230324
  Transmission Date: 20230417
  Serious: No
  Sender: FDA-Public Use
  Company Number: US-AYTU-2022-AYT-00449

PATIENT
  Age: 15 Year
  Sex: Female

DRUGS (1)
  1. ADZENYS XR-ODT [Suspect]
     Active Substance: AMPHETAMINE
     Indication: Product used for unknown indication
     Dosage: 9.4 MILLIGRAM
     Route: 048

REACTIONS (2)
  - Retching [Unknown]
  - Product physical issue [Unknown]
